FAERS Safety Report 10449845 (Version 2)
Quarter: 2014Q3

REPORT INFORMATION
  Report Type: Spontaneous
  Country: US (occurrence: US)
  Receive Date: 20140912
  Receipt Date: 20140912
  Transmission Date: 20150326
  Serious: No
  Sender: FDA-Public Use
  Company Number: US-INCYTE CORPORATION-2014IN001780

PATIENT
  Age: 54 Year
  Sex: Female

DRUGS (14)
  1. ASPIRIN. [Concomitant]
     Active Substance: ASPIRIN
     Dosage: 81 MG, QD
  2. ANAGRELIDE [Concomitant]
     Active Substance: ANAGRELIDE
     Dosage: 1 MG, UNK
  3. ESTRADIOL. [Concomitant]
     Active Substance: ESTRADIOL
     Dosage: 0.0375 MG, UNK
  4. ASPIRIN. [Concomitant]
     Active Substance: ASPIRIN
     Dosage: 325 MG, UNK
  5. PROMETHAZINE [Concomitant]
     Active Substance: PROMETHAZINE\PROMETHAZINE HYDROCHLORIDE
     Dosage: 25 MG, PRN
  6. CRESTOR [Concomitant]
     Active Substance: ROSUVASTATIN CALCIUM
     Dosage: 10 MG, QD
  7. LORAZEPAM. [Concomitant]
     Active Substance: LORAZEPAM
     Dosage: 1 MG, PRN
  8. JAKAFI [Suspect]
     Active Substance: RUXOLITINIB
     Indication: BLOOD DISORDER
     Dosage: 20 MG, BID
     Route: 048
     Dates: start: 20140529
  9. HUMALOG [Concomitant]
     Active Substance: INSULIN LISPRO
     Dosage: 100/ML, UNK
  10. VICODIN [Concomitant]
     Active Substance: ACETAMINOPHEN\HYDROCODONE BITARTRATE
     Dosage: 5-300MG, PRN
  11. TRAMADOL [Concomitant]
     Active Substance: TRAMADOL
     Dosage: 50 MG, PRN
  12. BENICAR HCT [Concomitant]
     Active Substance: HYDROCHLOROTHIAZIDE\OLMESARTAN MEDOXOMIL
     Dosage: 40-12.5, QD
  13. JAKAFI [Suspect]
     Active Substance: RUXOLITINIB
     Dosage: 20 MG, BID
     Route: 048
  14. LANTUS [Concomitant]
     Active Substance: INSULIN GLARGINE
     Dosage: 100/ML

REACTIONS (9)
  - Abdominal distension [Not Recovered/Not Resolved]
  - Blood glucose increased [Not Recovered/Not Resolved]
  - Platelet count increased [Not Recovered/Not Resolved]
  - Weight increased [Not Recovered/Not Resolved]
  - Headache [Not Recovered/Not Resolved]
  - Mass [Not Recovered/Not Resolved]
  - Abdominal pain [Not Recovered/Not Resolved]
  - Constipation [Not Recovered/Not Resolved]
  - Insomnia [Not Recovered/Not Resolved]

NARRATIVE: CASE EVENT DATE: 201406
